FAERS Safety Report 8418040-4 (Version None)
Quarter: 2012Q2

REPORT INFORMATION
  Report Type: 
  Country: None (occurrence: None)
  Receive Date: 20120531
  Receipt Date: 20120523
  Transmission Date: 20120825
  Serious: Yes (Death)
  Sender: FDA-Public Use
  Company Number: SP05771

PATIENT
  Age: 53 Year
  Sex: Male

DRUGS (6)
  1. ALLOPURINOL [Concomitant]
  2. RELISTOR [Suspect]
     Indication: CONSTIPATION
     Dosage: 8 MG, ONCE, SUBCUTANEOUS
     Route: 058
     Dates: start: 20120301, end: 20120301
  3. PERCOCET [Concomitant]
  4. UROCIT-K [Concomitant]
  5. KADIAN [Concomitant]
  6. HYDROCHLOROTHIAZIDE [Concomitant]

REACTIONS (3)
  - VISUAL IMPAIRMENT [None]
  - CEREBROVASCULAR ACCIDENT [None]
  - MIGRAINE [None]
